FAERS Safety Report 5495303-6 (Version None)
Quarter: 2007Q4

REPORT INFORMATION
  Report Type: 
  Country: None (occurrence: None)
  Receive Date: 20071024
  Receipt Date: 20071012
  Transmission Date: 20080405
  Serious: Yes (Other)
  Sender: FDA-Public Use
  Company Number: FR-PFIZER INC-2007086293

PATIENT
  Age: 31 Year
  Sex: Female
  Weight: 40 kg

DRUGS (3)
  1. LINEZOLID [Suspect]
     Indication: SEPTIC SHOCK
     Dosage: DAILY DOSE:1200MG
     Route: 042
  2. TIENAM [Concomitant]
  3. AMIKLIN [Concomitant]

REACTIONS (1)
  - HYPERCALCAEMIA [None]
